FAERS Safety Report 4577151-4 (Version None)
Quarter: 2005Q1

REPORT INFORMATION
  Report Type: 
  Country: None (occurrence: None)
  Receive Date: 20050210
  Receipt Date: 20050131
  Transmission Date: 20050727
  Serious: Yes (Death)
  Sender: FDA-Public Use
  Company Number: US-ROCHE-394293

PATIENT
  Age: 64 Year
  Sex: Male
  Weight: 103.9 kg

DRUGS (8)
  1. CELLCEPT [Suspect]
     Route: 065
     Dates: end: 20050130
  2. CYCLOSPORINE [Concomitant]
  3. PREDNISONE [Concomitant]
  4. KLOR-CON [Concomitant]
  5. BUMEX [Concomitant]
  6. AMOXICILLIN AND CLAVULANATE POTASSIUM [Concomitant]
  7. ACTONEL [Concomitant]
  8. ALTACE [Concomitant]

REACTIONS (1)
  - LUNG CANCER METASTATIC [None]
